FAERS Safety Report 8805990 (Version 3)
Quarter: 2013Q1

REPORT INFORMATION
  Report Type: Spontaneous
  Country: JP (occurrence: None)
  Receive Date: 20120918
  Receipt Date: 20130103
  Transmission Date: 20140127
  Serious: Yes (Other)
  Sender: FDA-Public Use
  Company Number: 2008JP005354

PATIENT
  Age: 42 Year
  Sex: Female
  Weight: 50 kg

DRUGS (20)
  1. PROGRAF (TACROLIMUS) CAPSULE [Suspect]
     Indication: LUPUS NEPHRITIS
     Dosage: ONE DAILY
     Route: 048
     Dates: start: 20070806
  2. PREDNISOLONE [Suspect]
     Dosage: OD.
     Route: 048
     Dates: end: 20071029
  3. LOXONIN [Suspect]
     Dosage: DAILY.
     Route: 048
  4. FOSAMAC [Suspect]
     Route: 048
     Dates: start: 20080415, end: 20120111
  5. NEUER (CETRAXATE HYDROCHLORIDE) PER ORAL NOS [Concomitant]
  6. JUVELA N (TOCOPHERYL NICOTINATE) [Concomitant]
  7. ROCALTROL (CALCITRIOL) [Concomitant]
  8. ASPARA-CA (ASPARTATE CALCIUM) [Concomitant]
  9. GASTER [Concomitant]
  10. BENET (RISEDRONATE SODIUM) TABLET [Concomitant]
  11. ANPLAG (SARPOGRELATE HYDROCHLORIDE) [Concomitant]
  12. PROCTOSEDYL (HYDROCORTISONE) [Concomitant]
  13. VOLTAREN (DICLOFENAC SODIUM) TAPE [Concomitant]
  14. TAKEPRON (LANSOPRAZOLE) ORODISPERSIBLE CR TABLET [Concomitant]
  15. NORVASC (AMLODIPINE BESILATE) [Concomitant]
  16. PL GRAN (CAFFEINE, PARACETAMOL, PROMETHAZINE METHYLENE DISALICYLATE, SALICYLAMIDE) GRANULE [Concomitant]
  17. FLOMOX (CEFCAPENE PIVOXIL HYDROCHLORIDE) [Concomitant]
  18. MUCOSOLVAN (AMBROXOL HYDROCHLORIDE) [Concomitant]
  19. HUSCODE (CHLORPHENAMINE MALEATE, DIHYDROCODEINE PHOSPHATE, METHYLEPHEDRINE HYDROCHLORIDE-DL) [Concomitant]
  20. KLARICID /00984601/ (CLARITHROMYCIN) [Concomitant]

REACTIONS (6)
  - Skin ulcer [None]
  - Hypertension [None]
  - Gastrooesophageal reflux disease [None]
  - Pharyngitis [None]
  - Skin atrophy [None]
  - Bronchitis [None]
